FAERS Safety Report 7362206-1 (Version None)
Quarter: 2011Q1

REPORT INFORMATION
  Report Type: 
  Country: None (occurrence: None)
  Receive Date: 20110318
  Receipt Date: 20110317
  Transmission Date: 20110831
  Serious: Yes (Hospitalization, Other)
  Sender: FDA-Public Use
  Company Number: ES-AMGEN-QUU428280

PATIENT
  Age: 31 Year
  Sex: Male
  Weight: 80 kg

DRUGS (6)
  1. CYCLOSPORINE [Concomitant]
     Dosage: UNK UNK, UNK
     Route: 048
  2. TRIMETHOPRIM + SULFAMETHOXAZOLE [Concomitant]
  3. NPLATE [Suspect]
     Indication: THROMBOCYTOPENIA
     Dosage: UNK UNK, QWK
     Route: 042
     Dates: start: 20100611, end: 20100729
  4. PLATELETS [Concomitant]
  5. PREDNISONE [Concomitant]
     Dosage: UNK UNK, UNK
     Route: 048
  6. UNSPECIFIED MEDICATION [Concomitant]

REACTIONS (14)
  - GASTRIC ULCER [None]
  - GIARDIASIS [None]
  - TREMOR [None]
  - ENCEPHALITIS VIRAL [None]
  - GASTROENTERITIS [None]
  - BLEBITIS [None]
  - CHEST PAIN [None]
  - MAJOR DEPRESSION [None]
  - GASTROINTESTINAL HAEMORRHAGE [None]
  - DRUG INEFFECTIVE [None]
  - CONVULSION [None]
  - MOUTH HAEMORRHAGE [None]
  - NEUTROPENIA [None]
  - THROMBOCYTOPENIA [None]
